FAERS Safety Report 6027894-0 (Version None)
Quarter: 2009Q1

REPORT INFORMATION
  Report Type: 
  Country: None (occurrence: None)
  Receive Date: 20090105
  Receipt Date: 20081222
  Transmission Date: 20090719
  Serious: Yes (Hospitalization)
  Sender: FDA-Public Use
  Company Number: DE-GENENTECH-274773

PATIENT
  Age: 58 Year
  Sex: Male

DRUGS (5)
  1. MABTHERA [Suspect]
     Indication: MULTIPLE MYELOMA
     Route: 065
  2. CYCLOPHOSPHAMIDE [Suspect]
     Indication: MULTIPLE MYELOMA
     Route: 065
  3. DOXORUBICIN HCL [Suspect]
     Indication: MULTIPLE MYELOMA
     Route: 065
  4. DEXAMETHASONE [Suspect]
     Indication: MULTIPLE MYELOMA
     Route: 065
  5. PREDNISONE TAB [Suspect]
     Indication: MULTIPLE MYELOMA
     Route: 065

REACTIONS (3)
  - CRYOGLOBULINAEMIA [None]
  - PNEUMONIA FUNGAL [None]
  - PSEUDOMONAL SEPSIS [None]
